FAERS Safety Report 23854493 (Version 2)
Quarter: 2024Q3

REPORT INFORMATION
  Report Type: Spontaneous
  Country: US (occurrence: US)
  Receive Date: 20240514
  Receipt Date: 20240702
  Transmission Date: 20241016
  Serious: Yes (Other)
  Sender: IPSEN
  Company Number: US-IPSEN Group, Research and Development-2024-07866

PATIENT
  Sex: Female
  Weight: 70 kg

DRUGS (1)
  1. SOMATULINE DEPOT [Suspect]
     Active Substance: LANREOTIDE ACETATE
     Indication: Product used for unknown indication
     Route: 058

REACTIONS (4)
  - Colitis ulcerative [Unknown]
  - Blood glucose decreased [Unknown]
  - Hyperhidrosis [Unknown]
  - Brain fog [Unknown]
